FAERS Safety Report 9322384 (Version 1)
Quarter: 2013Q2

REPORT INFORMATION
  Report Type: Spontaneous
  Country: US (occurrence: US)
  Receive Date: 20130531
  Receipt Date: 20130531
  Transmission Date: 20140414
  Serious: No
  Sender: FDA-Public Use
  Company Number: US-TARO-2012P1050301

PATIENT
  Age: 24 Year
  Sex: Female
  Weight: 53.98 kg

DRUGS (1)
  1. CLOTRIMAZOLE [Suspect]
     Indication: FUNGAL INFECTION
     Route: 067
     Dates: start: 20120716, end: 20120718

REACTIONS (2)
  - Hypersensitivity [Recovered/Resolved]
  - Infection [Recovered/Resolved]
